FAERS Safety Report 9647527 (Version 2)
Quarter: 2013Q4

REPORT INFORMATION
  Report Type: Spontaneous
  Country: US (occurrence: US)
  Receive Date: 20131028
  Receipt Date: 20131106
  Transmission Date: 20140711
  Serious: Yes (Hospitalization)
  Sender: FDA-Public Use
  Company Number: US-BIOGENIDEC-2013BI102557

PATIENT
  Age: 58 Year
  Sex: Female

DRUGS (2)
  1. TECFIDERA [Suspect]
     Indication: MULTIPLE SCLEROSIS
     Route: 048
     Dates: start: 20130701, end: 20130707
  2. TECFIDERA [Suspect]
     Indication: MULTIPLE SCLEROSIS
     Route: 048
     Dates: start: 20130708, end: 20130908

REACTIONS (6)
  - Fatigue [Not Recovered/Not Resolved]
  - Blood sodium decreased [Recovered/Resolved]
  - Intentional drug misuse [Recovered/Resolved]
  - Prescribed underdose [Recovered/Resolved]
  - Night sweats [Recovered/Resolved]
  - Cold sweat [Unknown]
